FAERS Safety Report 21016956 (Version 1)
Quarter: 2022Q2

REPORT INFORMATION
  Report Type: Spontaneous
  Country: US (occurrence: US)
  Receive Date: 20220628
  Receipt Date: 20220628
  Transmission Date: 20220721
  Serious: No
  Sender: FDA-Public Use
  Company Number: US-MYLANLABS-2022M1031310

PATIENT
  Sex: Male

DRUGS (3)
  1. SEMGLEE (INSULIN GLARGINE-YFGN) [Suspect]
     Active Substance: INSULIN GLARGINE-YFGN
     Indication: Diabetes mellitus
     Dosage: 100 INTERNATIONAL UNIT PER MILLILITRE
     Route: 058
  2. SEMGLEE (INSULIN GLARGINE-YFGN) [Suspect]
     Active Substance: INSULIN GLARGINE-YFGN
     Dosage: 100 INTERNATIONAL UNITS PER MILLILITRE
     Route: 058
  3. ASPARTAME [Concomitant]
     Active Substance: ASPARTAME
     Dosage: UNK

REACTIONS (5)
  - Device breakage [Unknown]
  - Device defective [Unknown]
  - Product quality issue [Unknown]
  - Therapy interrupted [Unknown]
  - Product dose omission issue [Unknown]
